FAERS Safety Report 6263335-6 (Version None)
Quarter: 2009Q3

REPORT INFORMATION
  Report Type: 
  Country: None (occurrence: None)
  Receive Date: 20090710
  Receipt Date: 20080829
  Transmission Date: 20100115
  Serious: No
  Sender: FDA-Public Use
  Company Number: A0714608A

PATIENT
  Age: 65 Year
  Sex: Female

DRUGS (3)
  1. FLOVENT [Suspect]
     Indication: ASTHMA
     Dosage: 110MCG TWICE PER DAY
     Route: 055
     Dates: start: 20080105
  2. BENAZEPRIL HYDROCHLORIDE [Concomitant]
  3. SYNTHROID [Concomitant]

REACTIONS (6)
  - CHEST DISCOMFORT [None]
  - COUGH [None]
  - HEADACHE [None]
  - INCORRECT DOSE ADMINISTERED [None]
  - PRODUCT QUALITY ISSUE [None]
  - WHEEZING [None]
